FAERS Safety Report 8041543 (Version 6)
Quarter: 2012Q4

REPORT INFORMATION
  Report Type: 
  Country: CZ (occurrence: CZ)
  Receive Date: 20110718
  Receipt Date: 20121206
  Transmission Date: 20130627
  Serious: Yes (Hospitalization)
  Sender: FDA-Public Use
  Company Number: PHHO2011CZ12014

PATIENT
  Age: 60 Year
  Sex: Male
  Weight: 70 kg

DRUGS (7)
  1. AMN107 [Suspect]
     Indication: GASTROINTESTINAL STROMAL TUMOUR
     Dosage: 800 mg, daily
     Route: 048
     Dates: start: 20100810, end: 20110618
  2. AMN107 [Suspect]
     Dosage: No treatment received
     Dates: start: 20110619, end: 20110620
  3. AMN107 [Suspect]
     Dosage: 800 mg, daily
     Route: 048
     Dates: start: 20110621, end: 20120104
  4. AMN107 [Suspect]
     Dosage: 800 mg, daily
     Route: 048
     Dates: start: 20120118
  5. PRESTARIUM NEO COMBI [Concomitant]
     Indication: HYPERTENSION
     Dosage: 10 mg, UNK
     Dates: start: 2008
  6. LOKREN [Concomitant]
     Indication: HYPERTENSION
     Dosage: 10 mg, UNK
     Dates: start: 2008
  7. LACTULOSE [Concomitant]
     Indication: CONSTIPATION
     Dosage: As needed
     Dates: start: 20100702, end: 20100830

REACTIONS (4)
  - Acute myocardial infarction [Recovered/Resolved]
  - Angina unstable [Recovering/Resolving]
  - Post procedural haemorrhage [Recovering/Resolving]
  - Angina pectoris [Recovered/Resolved]
